FAERS Safety Report 5896789-5 (Version None)
Quarter: 2008Q3

REPORT INFORMATION
  Report Type: 
  Country: None (occurrence: None)
  Receive Date: 20080924
  Receipt Date: 20071127
  Transmission Date: 20090109
  Serious: Yes (Other)
  Sender: FDA-Public Use
  Company Number: US-ASTRAZENECA-2007UW25491

PATIENT
  Age: 10048 Day
  Sex: Female
  Weight: 61.2 kg

DRUGS (3)
  1. SEROQUEL [Suspect]
     Route: 048
  2. ATIVAN [Concomitant]
     Route: 048
     Dates: start: 20070801
  3. METHADONE HCL [Concomitant]

REACTIONS (1)
  - CONVULSION [None]
